FAERS Safety Report 6479736-7 (Version None)
Quarter: 2009Q4

REPORT INFORMATION
  Report Type: 
  Country: None (occurrence: None)
  Receive Date: 20091119
  Receipt Date: 20090812
  Transmission Date: 20100525
  Serious: No
  Sender: FDA-Public Use
  Company Number: WAES 0908USA03425

PATIENT
  Sex: Female

DRUGS (1)
  1. STATIN (UNSPECIFIED) UNK [Suspect]

REACTIONS (1)
  - LIVER FUNCTION TEST ABNORMAL [None]
